FAERS Safety Report 20328763 (Version 1)
Quarter: 2022Q1

REPORT INFORMATION
  Report Type: Report from Study
  Country: FR (occurrence: FR)
  Receive Date: 20220112
  Receipt Date: 20220112
  Transmission Date: 20220423
  Serious: Yes (Hospitalization)
  Sender: FDA-Public Use
  Company Number: FR-JNJFOC-20210935880

PATIENT
  Age: 68 Year
  Sex: Male
  Weight: 79.5 kg

DRUGS (22)
  1. ERDAFITINIB [Suspect]
     Active Substance: ERDAFITINIB
     Indication: Transitional cell carcinoma
     Route: 048
     Dates: start: 20210512, end: 20210914
  2. SMECTA [Concomitant]
     Active Substance: MONTMORILLONITE
     Indication: Diarrhoea
     Dates: start: 20210616
  3. CYAMEMAZINE [Concomitant]
     Active Substance: CYAMEMAZINE
     Indication: Depression
     Dosage: 40 MG/ML
  4. TAMSULOSIN HYDROCHLORIDE [Concomitant]
     Active Substance: TAMSULOSIN HYDROCHLORIDE
     Indication: Prostate cancer
  5. SODIUM BICARBONATE [Concomitant]
     Active Substance: SODIUM BICARBONATE
     Indication: Varices oesophageal
  6. SERETIDE [Concomitant]
     Active Substance: FLUTICASONE PROPIONATE\SALMETEROL XINAFOATE
     Indication: Chronic obstructive pulmonary disease
     Dosage: 500 / 50 UG
  7. PREGABALIN [Concomitant]
     Active Substance: PREGABALIN
     Indication: Diabetic neuropathy
  8. PANTOPRAZOLE [Concomitant]
     Active Substance: PANTOPRAZOLE
     Indication: Varices oesophageal
  9. OXYCODONE HYDROCHLORIDE [Concomitant]
     Active Substance: OXYCODONE HYDROCHLORIDE
     Indication: Pain
  10. POLYETHYLENE GLYCOLS [Concomitant]
     Active Substance: POLYETHYLENE GLYCOLS
     Indication: Constipation
  11. OXYCONTIN [Concomitant]
     Active Substance: OXYCODONE HYDROCHLORIDE
     Indication: Pain
  12. OXYCONTIN [Concomitant]
     Active Substance: OXYCODONE HYDROCHLORIDE
  13. LOVENOX [Concomitant]
     Active Substance: ENOXAPARIN SODIUM
     Indication: Infarction
  14. FUROSEMIDE [Concomitant]
     Active Substance: FUROSEMIDE
     Indication: Hypertension
  15. KARDEGIC [Concomitant]
     Active Substance: ASPIRIN DL-LYSINE
  16. INSULIN NOS [Concomitant]
     Active Substance: INSULIN NOS
     Indication: Diabetes mellitus
     Dosage: 100 U/ML
     Dates: start: 2020
  17. DIAZEPAM [Concomitant]
     Active Substance: DIAZEPAM
     Indication: Hepatic cirrhosis
  18. DAFALGAN [Concomitant]
     Active Substance: ACETAMINOPHEN
     Indication: Pain
  19. BISOPROLOL [Concomitant]
     Active Substance: BISOPROLOL
     Indication: Coronary artery insufficiency
  20. ATORVASTATIN [Concomitant]
     Active Substance: ATORVASTATIN
     Indication: Infarction
  21. AMIODARONE [Concomitant]
     Active Substance: AMIODARONE
     Indication: Coronary artery insufficiency
  22. OXAZEPAM [Concomitant]
     Active Substance: OXAZEPAM
     Indication: Hepatic cirrhosis

REACTIONS (1)
  - Extremity necrosis [Recovered/Resolved]

NARRATIVE: CASE EVENT DATE: 20210915
